FAERS Safety Report 9261565 (Version 2)
Quarter: 2013Q2

REPORT INFORMATION
  Report Type: Spontaneous
  Country: JP (occurrence: JP)
  Receive Date: 20130429
  Receipt Date: 20130520
  Transmission Date: 20140414
  Serious: Yes (Hospitalization)
  Sender: FDA-Public Use
  Company Number: JP-PFIZER INC-2013128891

PATIENT
  Age: 87 Year
  Sex: Male

DRUGS (4)
  1. NORVASC [Suspect]
     Dosage: 5 MG, 1X/DAY IN THE MORNING
     Route: 048
  2. POLYFUL [Concomitant]
     Dosage: UNK
     Route: 048
  3. IRRIBOW [Concomitant]
     Route: 048
  4. LOPEMIN [Concomitant]
     Route: 048

REACTIONS (1)
  - Hypokalaemia [Recovering/Resolving]
